FAERS Safety Report 23140461 (Version 2)
Quarter: 2023Q4

REPORT INFORMATION
  Report Type: Report from Study
  Country: DE (occurrence: DE)
  Receive Date: 20231102
  Receipt Date: 20231111
  Transmission Date: 20240110
  Serious: Yes (Death, Disabling, Congenital Anomaly, Other)
  Sender: FDA-Public Use
  Company Number: DE-CELLTRION INC.-2023DE020753

PATIENT

DRUGS (63)
  1. RITUXIMAB [Suspect]
     Active Substance: RITUXIMAB
     Indication: Systemic lupus erythematosus
     Dosage: UNK
     Route: 064
  2. RITUXIMAB [Suspect]
     Active Substance: RITUXIMAB
     Dosage: LAST TIME IN DECEMBER 2011: PRE OR PERICONCEPTIONAL
     Route: 064
     Dates: start: 201112
  3. RITUXIMAB [Suspect]
     Active Substance: RITUXIMAB
     Dosage: UNK
     Route: 064
  4. RITUXIMAB [Suspect]
     Active Substance: RITUXIMAB
     Indication: Systemic lupus erythematosus
     Dosage: UNK
     Route: 064
  5. RITUXIMAB [Suspect]
     Active Substance: RITUXIMAB
     Dosage: LAST TIME IN DECEMBER 2011: PRE OR PERICONCEPTIONAL
     Route: 064
     Dates: start: 201112
  6. RITUXIMAB [Suspect]
     Active Substance: RITUXIMAB
     Dosage: UNK
     Route: 064
  7. EZETIMIBE [Suspect]
     Active Substance: EZETIMIBE
     Indication: Foetal exposure during pregnancy
     Dosage: FROM GESTATIONAL WEEK 0-14
     Route: 064
  8. EZETIMIBE [Suspect]
     Active Substance: EZETIMIBE
     Dosage: DOSE DESCRIPTION : FROM GESTATIONAL WEEK 0-14
     Route: 064
  9. EZETIMIBE [Suspect]
     Active Substance: EZETIMIBE
     Dosage: UNK
     Route: 064
  10. EZETIMIBE [Suspect]
     Active Substance: EZETIMIBE
     Dosage: FROM GESTATIONAL WEEK 0-14
     Route: 064
  11. EZETIMIBE [Suspect]
     Active Substance: EZETIMIBE
     Dosage: FROM GESTATIONAL WEEK 0-14
     Route: 064
  12. ALISKIREN [Suspect]
     Active Substance: ALISKIREN
     Indication: Foetal exposure during pregnancy
     Dosage: UNK
     Route: 064
  13. ALISKIREN [Suspect]
     Active Substance: ALISKIREN
     Dosage: 300 [MG/D]; 0-4.6 GESTATIONAL WEEK
     Route: 064
     Dates: start: 20111214, end: 20120117
  14. XARELTO [Suspect]
     Active Substance: RIVAROXABAN
     Indication: Foetal exposure during pregnancy
     Dosage: FROM GESTATIONAL WEEK 0-5
     Route: 064
  15. XARELTO [Suspect]
     Active Substance: RIVAROXABAN
     Dosage: FROM GESTATIONAL WEEK 0-5
     Route: 064
  16. XARELTO [Suspect]
     Active Substance: RIVAROXABAN
     Dosage: FROM GESTATIONAL WEEK 0-5
     Route: 064
  17. ALBUTEROL SULFATE [Suspect]
     Active Substance: ALBUTEROL SULFATE
     Indication: Foetal exposure during pregnancy
     Dosage: UNK
     Route: 064
  18. ALBUTEROL SULFATE [Suspect]
     Active Substance: ALBUTEROL SULFATE
     Dosage: UNK
     Route: 065
  19. SIMVASTATIN [Suspect]
     Active Substance: SIMVASTATIN
     Indication: Foetal exposure during pregnancy
     Dosage: FROM GESTATIONAL WEEK 0-14
     Route: 064
     Dates: start: 20111214, end: 20120320
  20. SIMVASTATIN [Suspect]
     Active Substance: SIMVASTATIN
     Dosage: FROM GESTATIONAL WEEK 0-14
     Route: 064
  21. SIMVASTATIN [Suspect]
     Active Substance: SIMVASTATIN
     Dosage: DOSE DESCRIPTION : FROM GESTATIONAL WEEK 0-14
     Route: 064
  22. SIMVASTATIN [Suspect]
     Active Substance: SIMVASTATIN
     Dosage: UNK
     Route: 064
  23. SIMVASTATIN [Suspect]
     Active Substance: SIMVASTATIN
     Dosage: FROM GESTATIONAL WEEK 0-14
     Route: 064
  24. HYDROXYCHLOROQUINE [Suspect]
     Active Substance: HYDROXYCHLOROQUINE
     Indication: Foetal exposure during pregnancy
     Dosage: FROM GESTATIONAL WEEK 0-14
     Route: 064
  25. HYDROXYCHLOROQUINE [Suspect]
     Active Substance: HYDROXYCHLOROQUINE
     Dosage: 400 MILLIGRAM, FROM GESTATIONAL WEEK 0-14
     Route: 064
     Dates: start: 20120320
  26. HYDROXYCHLOROQUINE [Suspect]
     Active Substance: HYDROXYCHLOROQUINE
     Dosage: 400 MILLIGRAM, FROM GESTATIONAL WEEK 0-14
     Route: 064
     Dates: start: 20111214, end: 20120320
  27. ALBUTEROL [Suspect]
     Active Substance: ALBUTEROL
     Indication: Foetal exposure during pregnancy
     Dosage: FROM GESTATIONAL WEEK 0-14 , 1 DAY
     Route: 064
  28. ALBUTEROL [Suspect]
     Active Substance: ALBUTEROL
     Dosage: FROM GESTATIONAL WEEK 0-14 , 1 DAY
     Route: 064
  29. ALBUTEROL [Suspect]
     Active Substance: ALBUTEROL
     Dosage: FROM GESTATIONAL WEEK 0-14
     Route: 064
  30. METAMIZOLE [Suspect]
     Active Substance: METAMIZOLE
     Indication: Foetal exposure during pregnancy
     Dosage: UNK; TRIMESTER: FIRST; PROBABLY ONLY IN HOSPITAL IN WEEK 5
     Route: 064
  31. METAMIZOLE [Suspect]
     Active Substance: METAMIZOLE
     Dosage: UNK; TRIMESTER: FIRST; PROBABLY ONLY IN HOSPITAL IN WEEK 5 ROM GESTATIONAL WEEK 0-14
     Route: 064
  32. PREDNISOLONE [Suspect]
     Active Substance: PREDNISOLONE
     Indication: Foetal exposure during pregnancy
     Dosage: FROM GESTATIONAL WEEK 0-14
     Route: 064
  33. PREDNISOLONE [Suspect]
     Active Substance: PREDNISOLONE
     Dosage: FROM GESTATIONAL WEEK 0-14
     Route: 064
     Dates: start: 20111214, end: 20120320
  34. PREDNISOLONE [Suspect]
     Active Substance: PREDNISOLONE
     Dosage: UNK
     Route: 064
  35. PREDNISOLONE [Suspect]
     Active Substance: PREDNISOLONE
     Dosage: FROM GESTATIONAL WEEK 0-14
     Route: 064
  36. ASPIRIN [Suspect]
     Active Substance: ASPIRIN
     Indication: Foetal exposure during pregnancy
     Dosage: DOSE DESCRIPTION : FROM GESTATIONAL WEEK 0-14
     Route: 064
  37. CYTOTEC [Suspect]
     Active Substance: MISOPROSTOL
     Indication: Abortion induced
     Dosage: UNK; 13.6 GESTATIONAL WEEK
     Route: 064
     Dates: start: 20120320, end: 20120320
  38. TORSEMIDE [Suspect]
     Active Substance: TORSEMIDE
     Indication: Foetal exposure during pregnancy
     Dosage: UNK
     Route: 064
  39. TORSEMIDE [Suspect]
     Active Substance: TORSEMIDE
     Dosage: FROM GESTATIONAL WEEK 0-14
     Route: 064
  40. TORSEMIDE [Suspect]
     Active Substance: TORSEMIDE
     Dosage: FROM GESTATIONAL WEEK 0-14
     Route: 064
     Dates: start: 20111214, end: 20120320
  41. CYCLOPHOSPHAMIDE [Suspect]
     Active Substance: CYCLOPHOSPHAMIDE
     Indication: Systemic lupus erythematosus
     Dosage: 3000 [MG CUMULATIVE]; PRECONCEPTIONAL
     Route: 064
     Dates: start: 201104, end: 201108
  42. DALTEPARIN SODIUM [Suspect]
     Active Substance: DALTEPARIN SODIUM
     Indication: Product used for unknown indication
     Dosage: UNK
     Route: 064
  43. ENOXAPARIN SODIUM [Suspect]
     Active Substance: ENOXAPARIN SODIUM
     Indication: Pulmonary embolism
     Dosage: 200 MILLIGRAM, 1 DAY
     Route: 064
     Dates: start: 20111214, end: 20120320
  44. ENOXAPARIN SODIUM [Suspect]
     Active Substance: ENOXAPARIN SODIUM
     Dosage: UNK
  45. METAMIZOLE [Suspect]
     Active Substance: METAMIZOLE
     Indication: Foetal exposure during pregnancy
     Dosage: FROM GESTATIONAL WEEK 0-14
     Route: 064
  46. METAMIZOLE [Suspect]
     Active Substance: METAMIZOLE
     Dosage: FROM GESTATIONAL WEEK 0-14
     Route: 064
  47. METAMIZOLE [Suspect]
     Active Substance: METAMIZOLE
     Dosage: FROM GESTATIONAL WEEK 0-14
     Route: 064
  48. METAMIZOLE SODIUM [Suspect]
     Active Substance: METAMIZOLE SODIUM
     Indication: Foetal exposure during pregnancy
     Dosage: DOSE DESCRIPTION : FROM GESTATIONAL WEEK 0-14
     Route: 064
  49. HYDROXYCHLOROQUINE SULFATE [Suspect]
     Active Substance: HYDROXYCHLOROQUINE SULFATE
     Indication: Foetal exposure during pregnancy
     Dosage: UNK
     Route: 064
  50. HYDROXYCHLOROQUINE SULFATE [Suspect]
     Active Substance: HYDROXYCHLOROQUINE SULFATE
     Dosage: UNK
     Route: 064
  51. ENOXAPARIN SODIUM [Suspect]
     Active Substance: ENOXAPARIN SODIUM
     Indication: Product used for unknown indication
     Dosage: FROM GESTATIONAL WEEK 0-14
     Route: 064
  52. NICOTINE [Suspect]
     Active Substance: NICOTINE
     Indication: Foetal exposure during pregnancy
     Dosage: 20 MILLIGRAM : FROM GESTATIONAL WEEK 0-14
     Route: 064
  53. UNSPECIFIED INGREDIENT [Suspect]
     Active Substance: UNSPECIFIED INGREDIENT
     Indication: Product used for unknown indication
     Dosage: UNK
     Route: 064
  54. UNSPECIFIED INGREDIENT [Suspect]
     Active Substance: UNSPECIFIED INGREDIENT
     Dosage: UNK
     Route: 064
  55. UNSPECIFIED INGREDIENT [Suspect]
     Active Substance: UNSPECIFIED INGREDIENT
     Dosage: UNK
     Route: 064
  56. RIVAROXABAN [Suspect]
     Active Substance: RIVAROXABAN
     Indication: Foetal exposure during pregnancy
     Dosage: FROM GESTATIONAL WEEK 0-5
     Route: 064
  57. PANTOPRAZOLE [Suspect]
     Active Substance: PANTOPRAZOLE
     Indication: Foetal exposure during pregnancy
     Dosage: FROM GESTATIONAL WEEK 0-14
     Route: 064
  58. RAMIPRIL [Suspect]
     Active Substance: RAMIPRIL
     Indication: Foetal exposure during pregnancy
     Dosage: 20 MG UNK FROM GESTATIONAL WEEK 0-113+6
     Route: 064
     Dates: start: 20111214, end: 20120320
  59. RAMIPRIL [Suspect]
     Active Substance: RAMIPRIL
     Dosage: 20 MG UNK FROM GESTATIONAL WEEK 0-113+6
     Route: 064
  60. RAMIPRIL [Suspect]
     Active Substance: RAMIPRIL
     Dosage: 20 MG, QD FROM GESTATIONAL WEEK 0-113+6
     Route: 064
  61. TACROLIMUS [Suspect]
     Active Substance: TACROLIMUS
     Indication: Systemic lupus erythematosus
     Dosage: FROM GESTATIONAL WEEK 0-14
     Route: 064
     Dates: start: 20111214, end: 20120320
  62. TACROLIMUS [Suspect]
     Active Substance: TACROLIMUS
     Indication: Embolism venous
     Dosage: FROM GESTATIONAL WEEK 0-14
     Route: 064
  63. TACROLIMUS [Suspect]
     Active Substance: TACROLIMUS
     Indication: Foetal exposure during pregnancy

REACTIONS (14)
  - Abortion induced [Fatal]
  - Cardiac septal defect [Fatal]
  - Ventricular septal defect [Fatal]
  - Cardiac septal defect [Fatal]
  - Truncus arteriosus persistent [Fatal]
  - Truncus arteriosus persistent [Fatal]
  - Congenital cardiovascular anomaly [Fatal]
  - Congenital cardiovascular anomaly [Fatal]
  - Heart disease congenital [Fatal]
  - Low birth weight baby [Unknown]
  - Premature baby [Unknown]
  - Foetal exposure during pregnancy [Fatal]
  - Foetal exposure during pregnancy [Unknown]
  - Intentional product use issue [Unknown]
